FAERS Safety Report 6405342-6 (Version None)
Quarter: 2009Q4

REPORT INFORMATION
  Report Type: 
  Country: None (occurrence: None)
  Receive Date: 20091019
  Receipt Date: 20091006
  Transmission Date: 20100525
  Serious: Yes (Hospitalization)
  Sender: FDA-Public Use
  Company Number: PHEH2009US07175

PATIENT
  Sex: Female
  Weight: 112.47 kg

DRUGS (5)
  1. RECLAST [Suspect]
     Indication: OSTEOPENIA
     Dosage: 5 MG YEARLY
     Route: 042
     Dates: start: 20090626
  2. ZOLOFT [Concomitant]
     Dosage: 75 MG, QD
     Route: 048
  3. HYDRODIURIL [Concomitant]
     Dosage: 25 MG, QD
     Route: 048
  4. OXYTROL [Concomitant]
     Dosage: 30 MG
     Route: 062
  5. LISINOPRIL [Concomitant]
     Dosage: 5 MG
     Route: 048

REACTIONS (6)
  - ERYTHEMA [None]
  - EYE IRRITATION [None]
  - HYPOCALCAEMIA [None]
  - MUSCLE SPASMS [None]
  - MUSCULAR WEAKNESS [None]
  - MYALGIA [None]
